FAERS Safety Report 8678048 (Version 2)
Quarter: 2015Q1

REPORT INFORMATION
  Report Type: Report from Study
  Country: US (occurrence: US)
  Receive Date: 20120723
  Receipt Date: 20150316
  Transmission Date: 20150721
  Serious: Yes (Death)
  Sender: FDA-Public Use
  Company Number: US-ROCHE-1090697

PATIENT
  Age: 61 Year
  Sex: Male

DRUGS (8)
  1. AVASTIN [Suspect]
     Active Substance: BEVACIZUMAB
     Indication: METASTATIC MALIGNANT MELANOMA
     Dosage: CYCLE 1 DAY1?NACL 0.9% (100 ML)?INFUSE OVER 60 MINS AT 100 MLS/HR
     Route: 042
     Dates: start: 20111206
  2. DIPHENHYDRAMINE [Concomitant]
     Active Substance: DIPHENHYDRAMINE
     Dosage: NACL (50ML)?INFUSE OVER 15 MINS AT 200 ML/HR
     Route: 042
     Dates: start: 20111220
  3. ZANTAC [Concomitant]
     Active Substance: RANITIDINE HYDROCHLORIDE
     Dosage: NACL 0.45 % (50ML)?INFUSE OVER 15 MINS AT 200 MLS/HR
     Route: 042
     Dates: start: 20111206
  4. AVASTIN [Suspect]
     Active Substance: BEVACIZUMAB
     Indication: LUNG NEOPLASM MALIGNANT
     Dosage: NACL 0.9% ?INFUSE OVER 60 MINS AT 100 ML/HR
     Route: 042
     Dates: start: 20111220
  5. DIPHENHYDRAMINE [Concomitant]
     Active Substance: DIPHENHYDRAMINE
     Dosage: NACL (50ML)?INFUSE OVER 15 MINS AT 200 MLS/HR
     Route: 042
     Dates: start: 20111206
  6. TAXOL [Concomitant]
     Active Substance: PACLITAXEL
     Dosage: NACL 0.9% (250ML)?INFUSE OVER 60 MINS AT 250 MLS/HR
     Route: 042
     Dates: start: 20111206
  7. TAXOL [Concomitant]
     Active Substance: PACLITAXEL
     Dosage: NACL 0.9% (250ML)?INFUSE OVER 60 MINS AT 250 MLS/HR
     Route: 042
     Dates: start: 20111220
  8. ZANTAC [Concomitant]
     Active Substance: RANITIDINE HYDROCHLORIDE
     Dosage: NACL 0.45 % (50ML)?INFUSE OVER 15 MINS AT 200 ML/HR
     Route: 042
     Dates: start: 20111220

REACTIONS (4)
  - Product use issue [Unknown]
  - Metastatic malignant melanoma [Fatal]
  - Hypotension [Unknown]
  - Respiratory failure [Fatal]

NARRATIVE: CASE EVENT DATE: 20120405
